FAERS Safety Report 4530206-2 (Version None)
Quarter: 2004Q4

REPORT INFORMATION
  Report Type: 
  Country: None (occurrence: None)
  Receive Date: 20041216
  Receipt Date: 20041216
  Transmission Date: 20050328
  Serious: Yes (Life-Threatening, Hospitalization)
  Sender: FDA-Public Use
  Company Number: None

PATIENT
  Sex: Female
  Weight: 77.5 kg

DRUGS (5)
  1. GEFITINIB 250MG TABS, ASTRAZENECA [Suspect]
     Indication: GLIOBLASTOMA MULTIFORME
     Dosage: 500 MG PO, QD
     Route: 048
     Dates: start: 20041105, end: 20041202
  2. RAPAMUNE [Suspect]
     Indication: GLIOBLASTOMA MULTIFORME
     Dosage: 10 MG PO, QD
     Route: 048
     Dates: start: 20041112, end: 20041202
  3. DEPAKOTE [Concomitant]
  4. DECADRON [Concomitant]
  5. ALBUTEROL PRN [Concomitant]

REACTIONS (10)
  - ANAEMIA [None]
  - ASTHENIA [None]
  - DIARRHOEA [None]
  - DYSURIA [None]
  - GRAND MAL CONVULSION [None]
  - HYPOKALAEMIA [None]
  - POLLAKIURIA [None]
  - THROMBOCYTOPENIA [None]
  - URINARY TRACT INFECTION [None]
  - VOMITING [None]
